FAERS Safety Report 23416270 (Version 1)
Quarter: 2024Q1

REPORT INFORMATION
  Report Type: Spontaneous
  Country: US (occurrence: US)
  Receive Date: 20240118
  Receipt Date: 20240118
  Transmission Date: 20240410
  Serious: No
  Sender: FDA-Public Use
  Company Number: US-SANOFI-01900848

PATIENT
  Sex: Female
  Weight: 40.8 kg

DRUGS (1)
  1. DUPIXENT [Suspect]
     Active Substance: DUPILUMAB
     Indication: Chronic obstructive pulmonary disease
     Dosage: 300 MG

REACTIONS (4)
  - Vertigo [Not Recovered/Not Resolved]
  - Conjunctivitis [Recovered/Resolved]
  - Oral herpes [Recovered/Resolved]
  - Product use in unapproved indication [Unknown]
